FAERS Safety Report 8100490-7 (Version None)
Quarter: 2012Q1

REPORT INFORMATION
  Report Type: 
  Country: None (occurrence: None)
  Receive Date: 20120129
  Receipt Date: 20111202
  Transmission Date: 20120608
  Serious: No
  Sender: FDA-Public Use
  Company Number: US-ABBOTT-11P-163-0870712-00

PATIENT
  Age: 34 Year
  Sex: Female

DRUGS (9)
  1. FOLIC ACID [Concomitant]
     Indication: PRODUCT USED FOR UNKNOWN INDICATION
  2. CALCIUM PLUS VIT D [Concomitant]
     Indication: PRODUCT USED FOR UNKNOWN INDICATION
  3. NEOCON [Concomitant]
     Indication: CONTRACEPTION
     Dosage: DAILY
  4. COLACE [Concomitant]
     Indication: CONSTIPATION
  5. FIORICET [Concomitant]
     Indication: MIGRAINE
     Dosage: NOT REPORTED
  6. HUMIRA [Suspect]
     Indication: CROHN'S DISEASE
     Dosage: LOADING DOSE
     Dates: start: 20111019
  7. HUMIRA [Suspect]
     Dosage: PAUSED BY RHEUMATOLOGIST
     Dates: start: 20111019, end: 20111130
  8. MULTIPLE VITAMINS [Concomitant]
     Indication: VITAMIN SUPPLEMENTATION
     Dosage: DAILY
  9. PREDNISONE TAB [Concomitant]
     Indication: PRODUCT USED FOR UNKNOWN INDICATION
     Dates: end: 20111101

REACTIONS (12)
  - PAIN [None]
  - RASH [None]
  - TENDERNESS [None]
  - SINUS CONGESTION [None]
  - CONDITION AGGRAVATED [None]
  - COUGH [None]
  - HEADACHE [None]
  - OROPHARYNGEAL PAIN [None]
  - ARTHRALGIA [None]
  - RASH ERYTHEMATOUS [None]
  - RASH PRURITIC [None]
  - SINUSITIS [None]
